FAERS Safety Report 7641506-1 (Version None)
Quarter: 2011Q3

REPORT INFORMATION
  Report Type: 
  Country: None (occurrence: None)
  Receive Date: 20110722
  Receipt Date: 20110708
  Transmission Date: 20111222
  Serious: Yes (Hospitalization)
  Sender: FDA-Public Use
  Company Number: ABR_00177_2011

PATIENT
  Age: 85 Year
  Sex: Male

DRUGS (4)
  1. PRIMPERAN TAB [Suspect]
     Indication: PRODUCT USED FOR UNKNOWN INDICATION
     Dosage: (DF (3 IN 1 D) ORAL)
     Route: 048
     Dates: start: 20110301, end: 20110420
  2. MULTAQ [Suspect]
     Indication: PRODUCT USED FOR UNKNOWN INDICATION
     Dosage: (DF ORAL)
     Route: 048
     Dates: start: 20110301, end: 20110420
  3. ERYTHROCIN [Suspect]
     Indication: PRODUCT USED FOR UNKNOWN INDICATION
     Dosage: (750 MG, (250 MG, 3 IN 1 D) ORAL)
     Route: 048
     Dates: start: 20110301
  4. INEXIUM /01479302/ (INEXIUM) 40 MG [Suspect]
     Indication: GASTROOESOPHAGEAL REFLUX DISEASE
     Dosage: (80 MG, 80 MG (40 MG, 2 IN 1 D) ORAL)
     Route: 048
     Dates: end: 20110401

REACTIONS (2)
  - THROMBOCYTOPENIA [None]
  - CONDITION AGGRAVATED [None]
